FAERS Safety Report 6447259-7 (Version None)
Quarter: 2009Q4

REPORT INFORMATION
  Report Type: 
  Country: None (occurrence: None)
  Receive Date: 20091119
  Receipt Date: 20091109
  Transmission Date: 20100525
  Serious: Yes (Death)
  Sender: FDA-Public Use
  Company Number: TH-PFIZER INC-2006102272

PATIENT
  Age: 61 Year
  Sex: Male
  Weight: 57 kg

DRUGS (9)
  1. SUNITINIB MALATE [Suspect]
     Indication: METASTATIC RENAL CELL CARCINOMA
     Dosage: 50 MG, 1X/DAY X 28 DAYS
     Route: 048
     Dates: start: 20060731, end: 20060820
  2. MORPHINE SULFATE [Suspect]
     Indication: PAIN
     Dosage: 30 MG, EVERY 4 HRS
     Route: 048
     Dates: start: 20060707, end: 20060813
  3. MORPHINE SULFATE [Suspect]
     Dosage: 30 MG, 3X/DAY
     Dates: start: 20060814
  4. GLUCOPHAGE [Concomitant]
     Route: 048
     Dates: start: 20050506
  5. GEMFIBROZIL [Concomitant]
     Route: 048
     Dates: start: 20050408
  6. ATORVASTATIN [Concomitant]
     Route: 048
     Dates: start: 20050506
  7. MODURETIC 5-50 [Concomitant]
     Route: 048
     Dates: start: 20060602, end: 20060808
  8. DAFLON [Concomitant]
     Route: 048
     Dates: start: 20060519, end: 20060808
  9. GLIBENCLAMIDE [Concomitant]
     Route: 048
     Dates: start: 20050506

REACTIONS (1)
  - RESPIRATORY FAILURE [None]
